FAERS Safety Report 9343599 (Version 4)
Quarter: 2013Q4

REPORT INFORMATION
  Report Type: Spontaneous
  Country: US (occurrence: US)
  Receive Date: 20130612
  Receipt Date: 20131028
  Transmission Date: 20140711
  Serious: Yes (Death, Other)
  Sender: FDA-Public Use
  Company Number: US-CELGENEUS-163-21880-13061243

PATIENT
  Age: 73 Year
  Sex: Female

DRUGS (24)
  1. REVLIMID [Suspect]
     Indication: PLASMA CELL MYELOMA
     Dosage: 25 MILLIGRAM
     Route: 048
     Dates: start: 20130124
  2. CELEXA [Concomitant]
     Indication: DEPRESSION
     Dosage: 20 MILLIGRAM
     Route: 048
     Dates: start: 20100604
  3. MELOXICAM [Concomitant]
     Indication: ARTHRITIS
     Dosage: 15 MILLIGRAM
     Route: 048
     Dates: start: 20100604
  4. AMLODIPINE BESYLATE [Concomitant]
     Indication: BLOOD PRESSURE
     Dosage: 10 MILLIGRAM
     Route: 048
     Dates: start: 20100604
  5. ZOFRAN [Concomitant]
     Indication: NAUSEA
     Dosage: 24 MILLIGRAM
     Route: 048
     Dates: start: 20100604
  6. VITAMIN B-6 [Concomitant]
     Indication: SUPPLEMENTATION THERAPY
     Dosage: 50 MILLIGRAM
     Route: 048
     Dates: start: 20100604
  7. CALCIUM MAGNESIUM [Concomitant]
     Indication: SUPPLEMENTATION THERAPY
     Route: 048
     Dates: start: 20100604
  8. VITAMIN D [Concomitant]
     Indication: SUPPLEMENTATION THERAPY
     Route: 048
     Dates: start: 20100604
  9. ALBUTEROL SULFATE [Concomitant]
     Indication: DYSPNOEA
     Dosage: .332 PERCENT
     Route: 048
     Dates: start: 20100604
  10. FLONASE [Concomitant]
     Indication: PRODUCT USED FOR UNKNOWN INDICATION
     Route: 045
     Dates: start: 20100604
  11. ADVAIR DISKUS [Concomitant]
     Indication: PRODUCT USED FOR UNKNOWN INDICATION
     Dosage: 250-50MCG
     Route: 065
     Dates: start: 20100720
  12. ACYCLOVIR [Concomitant]
     Indication: PROPHYLAXIS
     Dosage: 800 MILLIGRAM
     Route: 048
     Dates: start: 20100817
  13. NASACORT AQ [Concomitant]
     Indication: PRODUCT USED FOR UNKNOWN INDICATION
     Dosage: 55MCG/ACT
     Route: 045
     Dates: start: 20101230
  14. PROCHLORPERAZINE MALEATE [Concomitant]
     Indication: NAUSEA
     Dosage: 40 MILLIGRAM
     Route: 048
     Dates: start: 20111004
  15. CETIRIZINE HCL [Concomitant]
     Indication: PRODUCT USED FOR UNKNOWN INDICATION
     Dosage: 10 MILLIGRAM
     Route: 048
     Dates: start: 20111115
  16. AUGMENTIN [Concomitant]
     Indication: PRODUCT USED FOR UNKNOWN INDICATION
     Dosage: 500-125MG
     Route: 048
     Dates: start: 20111215
  17. EMLA [Concomitant]
     Indication: PRODUCT USED FOR UNKNOWN INDICATION
     Dosage: 2.5-2.5%
     Route: 065
     Dates: start: 20120320
  18. GUAIFENESIN-CODEINE [Concomitant]
     Indication: COUGH
     Dosage: 5-10ML
     Route: 048
     Dates: start: 20120525
  19. QUALAQUIN [Concomitant]
     Indication: MUSCLE SPASMS
     Dosage: 324 MILLIGRAM
     Route: 048
     Dates: start: 20120529
  20. TESSALON PERLES [Concomitant]
     Indication: MUSCLE SPASMS
     Dosage: 1-2
     Route: 048
     Dates: start: 20120612
  21. REQUIP [Concomitant]
     Indication: MUSCLE SPASMS
     Dosage: 1-4
     Route: 048
     Dates: start: 20120710
  22. TRAZODONE HCL [Concomitant]
     Indication: PRODUCT USED FOR UNKNOWN INDICATION
     Dosage: 1/3TAB/1/2TAB/1TAB
     Route: 048
     Dates: start: 20121211
  23. DEXAMETHASONE [Concomitant]
     Indication: PRODUCT USED FOR UNKNOWN INDICATION
     Route: 048
     Dates: start: 20130205
  24. CIPROFLOXACIN HCL [Concomitant]
     Indication: PRODUCT USED FOR UNKNOWN INDICATION
     Dosage: 1000 MILLIGRAM
     Route: 048
     Dates: start: 20130510

REACTIONS (2)
  - Cardio-respiratory arrest [Fatal]
  - Myocardial ischaemia [Unknown]
